FAERS Safety Report 16491740 (Version 1)
Quarter: 2019Q2

REPORT INFORMATION
  Report Type: Spontaneous
  Country: CA (occurrence: CA)
  Receive Date: 20190628
  Receipt Date: 20190628
  Transmission Date: 20190711
  Serious: Yes (Hospitalization)
  Sender: FDA-Public Use
  Company Number: CA-TEVA-2019-CA-1067893

PATIENT
  Age: 75 Year
  Sex: Female

DRUGS (17)
  1. ATORVASTATIN CALCIUM. [Concomitant]
     Active Substance: ATORVASTATIN CALCIUM
  2. NICOTINE. [Concomitant]
     Active Substance: NICOTINE
  3. ONDANSETRON [Concomitant]
     Active Substance: ONDANSETRON
  4. AMIODARONE HYDROCHLORIDE. [Suspect]
     Active Substance: AMIODARONE HYDROCHLORIDE
     Indication: VENTRICULAR TACHYCARDIA
     Dosage: 600 MILLIGRAM DAILY;
     Route: 048
  5. RAMIPRIL. [Concomitant]
     Active Substance: RAMIPRIL
  6. FUROSEMIDE. [Concomitant]
     Active Substance: FUROSEMIDE
  7. THIAMINE HCL [Concomitant]
     Active Substance: THIAMINE HYDROCHLORIDE
  8. ASA [Concomitant]
     Active Substance: ASPIRIN
  9. PANTOPRAZOLE [Concomitant]
     Active Substance: PANTOPRAZOLE
  10. ACETAMINOPHEN. [Concomitant]
     Active Substance: ACETAMINOPHEN
  11. DIMENHYDRINATE. [Concomitant]
     Active Substance: DIMENHYDRINATE
  12. LORAZEPAM. [Concomitant]
     Active Substance: LORAZEPAM
  13. ELIQUIS [Concomitant]
     Active Substance: APIXABAN
  14. METOPROLOL. [Concomitant]
     Active Substance: METOPROLOL
  15. MULTIVITAMIN [ASCORBIC ACID;BIOTIN;CALCIUM PANTOTHENATE;CYANOCOBALAMIN [Concomitant]
     Active Substance: VITAMINS
  16. NITROGLYCERIN. [Concomitant]
     Active Substance: NITROGLYCERIN
  17. SPIRIVA [Concomitant]
     Active Substance: TIOTROPIUM BROMIDE MONOHYDRATE

REACTIONS (1)
  - Drug-induced liver injury [Unknown]
